FAERS Safety Report 7587408-0 (Version None)
Quarter: 2011Q3

REPORT INFORMATION
  Report Type: 
  Country: None (occurrence: None)
  Receive Date: 20110704
  Receipt Date: 20110627
  Transmission Date: 20111222
  Serious: Yes (Other)
  Sender: FDA-Public Use
  Company Number: US-BRISTOL-MYERS SQUIBB COMPANY-15857352

PATIENT

DRUGS (1)
  1. YERVOY [Suspect]
     Dosage: 2ND CYCLE.

REACTIONS (1)
  - RECTAL HAEMORRHAGE [None]
